FAERS Safety Report 25897252 (Version 3)
Quarter: 2025Q4

REPORT INFORMATION
  Report Type: Spontaneous
  Country: US (occurrence: US)
  Receive Date: 20251008
  Receipt Date: 20251223
  Transmission Date: 20260117
  Serious: Yes (Death, Hospitalization, Other)
  Sender: SANOFI AVENTIS
  Company Number: US-SA-2025SA299541

PATIENT
  Age: 72 Year
  Sex: Female

DRUGS (1)
  1. DUPIXENT [Suspect]
     Active Substance: DUPILUMAB
     Indication: Dermatitis atopic
     Dosage: UNK
     Dates: start: 202406, end: 202407

REACTIONS (10)
  - Cutaneous T-cell lymphoma [Fatal]
  - Condition aggravated [Fatal]
  - Pain [Fatal]
  - Rash [Fatal]
  - Cellulitis [Recovered/Resolved]
  - Swelling face [Recovered/Resolved]
  - Hypertrophic scar [Unknown]
  - Emotional distress [Unknown]
  - Anhedonia [Unknown]
  - Drug ineffective [Unknown]

NARRATIVE: CASE EVENT DATE: 20240101
